FAERS Safety Report 8988352 (Version 1)
Quarter: 2012Q4

REPORT INFORMATION
  Report Type: Spontaneous
  Country: US (occurrence: None)
  Receive Date: 20121220
  Receipt Date: 20121220
  Transmission Date: 20130627
  Serious: No
  Sender: FDA-Public Use
  Company Number: None

PATIENT
  Age: 70 Year
  Sex: Male
  Weight: 101.2 kg

DRUGS (15)
  1. VORICONAZOLE [Suspect]
     Indication: EPIDURAL ABSCESS
     Route: 048
     Dates: start: 20121212, end: 20121217
  2. VORICONAZOLE [Suspect]
     Indication: EPIDURAL ABSCESS
     Route: 048
     Dates: start: 20121212, end: 20121217
  3. ASPIRIN [Concomitant]
  4. ATENOLOL [Concomitant]
  5. DOCUSATE [Concomitant]
  6. EZETIMIBE [Concomitant]
  7. FENOFIBRATE [Concomitant]
  8. FERROUS SULFATE [Concomitant]
  9. LATANOPROST [Concomitant]
  10. LORATADINE [Concomitant]
  11. MULTIVITAMIN [Concomitant]
  12. SENNA [Concomitant]
  13. WARFARIN [Concomitant]
  14. NORCO 5/325 [Concomitant]
  15. MAALOX [Concomitant]

REACTIONS (1)
  - Hiccups [None]
